FAERS Safety Report 9824944 (Version 1)
Quarter: 2014Q1

REPORT INFORMATION
  Report Type: Report from Study
  Country: US (occurrence: US)
  Receive Date: 20140117
  Receipt Date: 20140117
  Transmission Date: 20141002
  Serious: Yes (Other)
  Sender: FDA-Public Use
  Company Number: US-JNJFOC-20140105014

PATIENT
  Sex: Male
  Weight: 92.99 kg

DRUGS (7)
  1. REMICADE [Suspect]
     Indication: PSORIASIS
     Route: 042
     Dates: start: 2010
  2. SYNTHROID [Concomitant]
     Indication: THYROID DISORDER
     Route: 048
     Dates: start: 1970
  3. PANTOPRAZOLE [Concomitant]
     Indication: GANGRENE
     Route: 048
     Dates: start: 201304
  4. ALLOPURINOL [Concomitant]
     Indication: GOUT
     Route: 048
     Dates: start: 1989
  5. ENABLEX [Concomitant]
     Indication: DYSPEPSIA
     Route: 048
     Dates: start: 2001
  6. DONEPEZIL [Concomitant]
     Route: 048
     Dates: start: 2001
  7. PAROXETINE [Concomitant]
     Route: 048
     Dates: start: 20130413

REACTIONS (5)
  - Arthritis [Not Recovered/Not Resolved]
  - Loss of consciousness [Recovered/Resolved]
  - Infusion related reaction [Recovered/Resolved]
  - Feeling of body temperature change [Recovered/Resolved]
  - Drug resistance [Not Recovered/Not Resolved]
